FAERS Safety Report 9390512 (Version 1)
Quarter: 2013Q3

REPORT INFORMATION
  Report Type: Spontaneous
  Country: JP (occurrence: JP)
  Receive Date: 20130709
  Receipt Date: 20130709
  Transmission Date: 20140515
  Serious: Yes (Other)
  Sender: FDA-Public Use
  Company Number: JP-ROXANE LABORATORIES, INC.-2013-RO-01100RO

PATIENT
  Age: 5 Year
  Sex: Female

DRUGS (1)
  1. CLARITHROMYCIN [Suspect]
     Indication: PNEUMONIA MYCOPLASMAL
     Route: 048

REACTIONS (2)
  - Pathogen resistance [Recovered/Resolved]
  - Vomiting [Recovered/Resolved]
